FAERS Safety Report 6860265-3 (Version None)
Quarter: 2010Q3

REPORT INFORMATION
  Report Type: 
  Country: None (occurrence: None)
  Receive Date: 20100720
  Receipt Date: 20070716
  Transmission Date: 20110219
  Serious: Yes (Other)
  Sender: FDA-Public Use
  Company Number: US-PFIZER INC-2007048532

PATIENT
  Sex: Male
  Weight: 102.1 kg

DRUGS (17)
  1. CHANTIX [Suspect]
     Indication: SMOKING CESSATION THERAPY
     Dates: start: 20070531, end: 20070614
  2. MORPHINE SULFATE [Concomitant]
     Indication: PAIN
     Dosage: 60
  3. OXYCODONE HCL [Concomitant]
  4. SKELAXIN [Concomitant]
  5. ABILIFY [Concomitant]
  6. EFFEXOR [Concomitant]
  7. VISTARIL [Concomitant]
  8. AMBIEN [Concomitant]
  9. METFORMIN HCL [Concomitant]
  10. ALBUTEROL SULFATE [Concomitant]
     Route: 055
  11. ALL OTHER THERAPEUTIC PRODUCTS [Concomitant]
  12. SPIRIVA [Concomitant]
  13. COMBIVENT [Concomitant]
  14. KLONOPIN [Concomitant]
  15. NIFEDIPINE [Concomitant]
     Indication: HYPERTENSION
  16. NIFEDIPINE [Concomitant]
     Indication: CHRONIC OBSTRUCTIVE PULMONARY DISEASE
  17. DIOVAN HCT [Concomitant]
     Indication: HYPERTENSION
     Dosage: 320/25

REACTIONS (8)
  - ABNORMAL DREAMS [None]
  - AMNESIA [None]
  - ANXIETY [None]
  - DRUG INEFFECTIVE [None]
  - GALLBLADDER DISORDER [None]
  - NAUSEA [None]
  - NIGHTMARE [None]
  - SLEEP DISORDER [None]
